FAERS Safety Report 14701236 (Version 1)
Quarter: 2018Q1

REPORT INFORMATION
  Report Type: Spontaneous
  Country: US (occurrence: US)
  Receive Date: 20180328
  Receipt Date: 20180328
  Transmission Date: 20180509
  Serious: No
  Sender: FDA-Public Use
  Company Number: None

PATIENT
  Age: 55 Year
  Sex: Female

DRUGS (18)
  1. OCALIVA [Suspect]
     Active Substance: OBETICHOLIC ACID
     Indication: PRIMARY BILIARY CHOLANGITIS
     Route: 048
     Dates: start: 20170928
  2. VALACYCLOVIR [Concomitant]
     Active Substance: VALACYCLOVIR HYDROCHLORIDE
  3. VITAMIN E [Concomitant]
     Active Substance: .ALPHA.-TOCOPHEROL
  4. CALCIUM CARB [Concomitant]
     Active Substance: CALCIUM CARBONATE
  5. TYLENOL [Concomitant]
     Active Substance: ACETAMINOPHEN
  6. AMOXICILLIN. [Concomitant]
     Active Substance: AMOXICILLIN
  7. TERCONAZOLE. [Concomitant]
     Active Substance: TERCONAZOLE
  8. VITAMIN C [Concomitant]
     Active Substance: ASCORBIC ACID
  9. VALACYCLOVIR [Concomitant]
     Active Substance: VALACYCLOVIR HYDROCHLORIDE
  10. MULTIVIT/FL [Concomitant]
  11. PROPRANOLOL [Concomitant]
     Active Substance: PROPRANOLOL HYDROCHLORIDE
  12. VITAMIN  DS [Concomitant]
  13. URSODIOL. [Concomitant]
     Active Substance: URSODIOL
  14. AMOXICILLIN. [Concomitant]
     Active Substance: AMOXICILLIN
  15. MONTELUKAST [Concomitant]
     Active Substance: MONTELUKAST SODIUM
  16. VITAMIN A [Concomitant]
     Active Substance: VITAMIN A
  17. PROBIOTIC [Concomitant]
     Active Substance: PROBIOTICS NOS
  18. METRONIDAZOL [Concomitant]
     Active Substance: METRONIDAZOLE

REACTIONS (1)
  - Dyspepsia [None]
